FAERS Safety Report 6176981-5 (Version None)
Quarter: 2009Q2

REPORT INFORMATION
  Report Type: 
  Country: None (occurrence: None)
  Receive Date: 20090501
  Receipt Date: 20090204
  Transmission Date: 20091009
  Serious: Yes (Other)
  Sender: FDA-Public Use
  Company Number: US-ALEXION-A200900101

PATIENT
  Sex: Female

DRUGS (8)
  1. SOLIRIS [Suspect]
     Indication: PAROXYSMAL NOCTURNAL HAEMOGLOBINURIA
     Dosage: 600 MG, QW
     Route: 042
     Dates: start: 20070904
  2. SOLIRIS [Suspect]
     Dosage: 900 MG, Q2W
     Route: 042
  3. DANAZOL [Concomitant]
     Dosage: 50 MG, QD
     Route: 048
     Dates: start: 20080123
  4. DANAZOL [Concomitant]
     Dosage: 100 MG, QD
     Route: 048
     Dates: start: 20080625
  5. PREDNISONE [Concomitant]
     Dosage: 5 MG, QD
     Route: 048
     Dates: start: 20090204
  6. COUMADIN [Concomitant]
     Indication: ANTICOAGULANT THERAPY
     Dosage: 1 MG, QD
     Route: 048
  7. FOLATE [Concomitant]
     Dosage: 1 MG, QD
     Route: 048
  8. IRON SULFATETHIAMIN COMPOUND TAB [Concomitant]
     Dosage: 325-700 MG, QD
     Route: 048

REACTIONS (2)
  - ABORTION INDUCED [None]
  - PREGNANCY [None]
